FAERS Safety Report 7911782-6 (Version None)
Quarter: 2011Q4

REPORT INFORMATION
  Report Type: 
  Country: None (occurrence: None)
  Receive Date: 20111114
  Receipt Date: 20111114
  Transmission Date: 20120403
  Serious: Yes (Other)
  Sender: FDA-Public Use
  Company Number: None

PATIENT
  Age: 19 Year
  Sex: Female
  Weight: 47.627 kg

DRUGS (1)
  1. METHYLPREDNISOLONE [Suspect]
     Indication: INFLAMMATION
     Dosage: VARIES
     Route: 048
     Dates: start: 20111021, end: 20111023

REACTIONS (4)
  - FALL [None]
  - DIZZINESS [None]
  - HEART RATE INCREASED [None]
  - HYPERHIDROSIS [None]
